FAERS Safety Report 16026747 (Version 3)
Quarter: 2021Q1

REPORT INFORMATION
  Report Type: Spontaneous
  Country: US (occurrence: US)
  Receive Date: 20190303
  Receipt Date: 20210122
  Transmission Date: 20210419
  Serious: Yes (Hospitalization)
  Sender: FDA-Public Use
  Company Number: US-TEVA-2019-US-1017171

PATIENT
  Age: 15 Year
  Sex: Male

DRUGS (2)
  1. QUETIAPINE. [Suspect]
     Active Substance: QUETIAPINE
     Indication: MANIA
     Dosage: ORAL QUETIAPINE 25MG DURING THE DAY AND ORAL QUETIAPINE 75MG AT NIGHT
     Route: 048
  2. VALPROIC ACID. [Suspect]
     Active Substance: VALPROIC ACID
     Indication: MANIA
     Dosage: ORAL VALPROIC ACID 125MG DURING THE DAY AND ORAL VALPROIC ACID 375MG AT BEDTIME
     Route: 048

REACTIONS (2)
  - Hyperammonaemia [Unknown]
  - Catatonia [Recovered/Resolved]
